FAERS Safety Report 15706852 (Version 2)
Quarter: 2019Q2

REPORT INFORMATION
  Report Type: Report from Study
  Country: US (occurrence: US)
  Receive Date: 20181210
  Receipt Date: 20190613
  Transmission Date: 20190711
  Serious: Yes (Death, Hospitalization, Other)
  Sender: FDA-Public Use
  Company Number: US-SEATTLE GENETICS-2018SGN02960

PATIENT
  Age: 20 Year
  Sex: Male
  Weight: 73.2 kg

DRUGS (11)
  1. ALBUTEROL                          /00139501/ [Concomitant]
     Active Substance: ALBUTEROL
  2. BRENTUXIMAB VEDOTIN [Suspect]
     Active Substance: BRENTUXIMAB VEDOTIN
     Indication: HODGKIN^S DISEASE
     Dosage: 1.8 MG/KG, OVER 90 MINUTES ON DAY 1
     Route: 042
     Dates: start: 20171107, end: 20180821
  3. NIVOLUMAB [Suspect]
     Active Substance: NIVOLUMAB
     Indication: HODGKIN^S DISEASE
     Dosage: 3 MG/KG, OVER 30 MINUTES ON DAY 1 Q21 DAYS FOR 16 CYCLES
     Route: 042
     Dates: start: 20171107, end: 20180821
  4. PROCHLORPERAZINE. [Concomitant]
     Active Substance: PROCHLORPERAZINE
  5. IPILIMUMAB [Suspect]
     Active Substance: IPILIMUMAB
     Indication: HODGKIN^S DISEASE
     Dosage: 1 MG, OVER 30 MINUTES ON DAY 1
     Route: 042
     Dates: start: 20171107, end: 20180223
  6. BUDESONIDE;FORMOTEROL;GLYCOPYRRONIUM [Concomitant]
  7. LORATADINE. [Concomitant]
     Active Substance: LORATADINE
  8. OMEPRAZOLE. [Concomitant]
     Active Substance: OMEPRAZOLE
  9. ONDANSETRON [Concomitant]
     Active Substance: ONDANSETRON
  10. LORAZEPAM. [Concomitant]
     Active Substance: LORAZEPAM
  11. PREDNISONE. [Concomitant]
     Active Substance: PREDNISONE

REACTIONS (2)
  - Respiratory failure [Fatal]
  - Dyspnoea [Fatal]

NARRATIVE: CASE EVENT DATE: 20181021
